FAERS Safety Report 6859677-3 (Version None)
Quarter: 2010Q3

REPORT INFORMATION
  Report Type: 
  Country: None (occurrence: None)
  Receive Date: 20100720
  Receipt Date: 20100709
  Transmission Date: 20110219
  Serious: Yes (Other)
  Sender: FDA-Public Use
  Company Number: SE-AMGEN-QUU423501

PATIENT
  Sex: Female

DRUGS (2)
  1. ENBREL [Suspect]
     Indication: RHEUMATOID ARTHRITIS
     Route: 058
     Dates: start: 20080128, end: 20091127
  2. PREDNISOLONE [Concomitant]
     Dosage: UNKNOWN DOSE

REACTIONS (1)
  - SYSTEMIC LUPUS ERYTHEMATOSUS [None]
